FAERS Safety Report 6572351-6 (Version None)
Quarter: 2010Q1

REPORT INFORMATION
  Report Type: 
  Country: None (occurrence: None)
  Receive Date: 20100201
  Receipt Date: 20100118
  Transmission Date: 20100710
  Serious: Yes (Death, Hospitalization)
  Sender: FDA-Public Use
  Company Number: 10-006

PATIENT
  Age: 50 Year
  Sex: Female

DRUGS (17)
  1. AMLODIPINE BESYLATE [Suspect]
     Indication: HYPERTENSION
     Dosage: 10MG DAILY, NASOGASTRIC
  2. CLONIDINE [Concomitant]
  3. VERAPAMIL [Concomitant]
  4. VALSARTAN [Concomitant]
  5. METOPROLOL TARTRATE [Concomitant]
  6. RANITIDINE [Concomitant]
  7. CINACALCET HYDROCHLORIDE [Concomitant]
  8. LABETALOL HCL [Concomitant]
  9. ATROPINE [Concomitant]
  10. EPINEPHRINE [Concomitant]
  11. NICARDIPINE HYDROCHLORIDE [Concomitant]
  12. PROPOFOL [Concomitant]
  13. FENTANYL-100 [Concomitant]
  14. FOSPHENYTOIN [Concomitant]
  15. FAMOTIDINE [Concomitant]
  16. VANCOMYCIN [Concomitant]
  17. LOSARTAN POTASSIUM [Concomitant]

REACTIONS (7)
  - ANGIOEDEMA [None]
  - CARDIAC ARREST [None]
  - CONVULSION [None]
  - NO THERAPEUTIC RESPONSE [None]
  - PYREXIA [None]
  - RESPIRATORY DISTRESS [None]
  - TACHYCARDIA [None]
